FAERS Safety Report 5608990-6 (Version None)
Quarter: 2008Q1

REPORT INFORMATION
  Report Type: 
  Country: None (occurrence: None)
  Receive Date: 20080131
  Receipt Date: 20080123
  Transmission Date: 20080703
  Serious: Yes (Other)
  Sender: FDA-Public Use
  Company Number: PHBS2008IT01362

PATIENT
  Age: 32 Year
  Sex: Female

DRUGS (2)
  1. DEFEROXAMINE MESYLATE [Suspect]
     Indication: THALASSAEMIA BETA
     Route: 065
  2. FOLIC ACID [Concomitant]

REACTIONS (7)
  - CAESAREAN SECTION [None]
  - DRUG EXPOSURE DURING PREGNANCY [None]
  - FOETAL DISTRESS SYNDROME [None]
  - GESTATIONAL DIABETES [None]
  - PREMATURE LABOUR [None]
  - RENAL COLIC [None]
  - SUPRAVENTRICULAR TACHYCARDIA [None]
